FAERS Safety Report 22099637 (Version 1)
Quarter: 2023Q1

REPORT INFORMATION
  Report Type: Spontaneous
  Country: US (occurrence: None)
  Receive Date: 20230315
  Receipt Date: 20230315
  Transmission Date: 20230417
  Serious: Yes (Hospitalization)
  Sender: FDA-Public Use
  Company Number: None

PATIENT
  Age: 63 Year
  Sex: Male
  Weight: 99.34 kg

DRUGS (42)
  1. LENALIDOMIDE [Suspect]
     Active Substance: LENALIDOMIDE
     Indication: Plasma cell myeloma
     Dosage: FREQUENCY : DAILY;?
     Route: 048
  2. ALENDRONATE [Concomitant]
  3. ANORO ELLIPTA [Concomitant]
  4. ASCORBIC ACID [Concomitant]
  5. ASPIRIN [Concomitant]
  6. ATORVASTATIN [Concomitant]
  7. AZITHROMYCIN [Concomitant]
  8. BENZONATATE [Concomitant]
  9. CALCIUM [Concomitant]
  10. CAREVEDILOL [Concomitant]
  11. CLARITIN [Concomitant]
  12. COREG [Concomitant]
     Active Substance: CARVEDILOL
  13. CYCLOBENZAPRINE [Concomitant]
  14. ELIQUIS [Concomitant]
  15. ENTRESTO [Concomitant]
  16. EZETIMIBE [Concomitant]
  17. FARXIGA [Concomitant]
  18. FOSAMAX [Concomitant]
  19. ALBUTEROL\IPRATROPIUM [Concomitant]
     Active Substance: ALBUTEROL\IPRATROPIUM
  20. ISOSORBIDE [Concomitant]
  21. LASIX [Concomitant]
  22. LIPITOR [Concomitant]
  23. LISINOPRIL [Concomitant]
  24. LORATADINE [Concomitant]
  25. METFORMIN [Concomitant]
  26. METHOTREXATE [Concomitant]
  27. MOBIC [Concomitant]
  28. MONTELUKAST [Concomitant]
  29. NEURONTIN [Concomitant]
  30. NORCO [Concomitant]
  31. PLAVIX [Concomitant]
  32. PROAIR [Concomitant]
  33. PROTONIX [Concomitant]
  34. PROVENTIL [Concomitant]
  35. ROBAXIN [Concomitant]
     Active Substance: METHOCARBAMOL
  36. SINGULAIR [Concomitant]
  37. TAMSULOSIN [Concomitant]
  38. TRELEGY ELLIPTA [Concomitant]
  39. VIAGRA [Concomitant]
  40. VITAMIN D [Concomitant]
  41. ZANAFLEX [Concomitant]
  42. ZETIA [Concomitant]

REACTIONS (1)
  - Chronic obstructive pulmonary disease [None]
